FAERS Safety Report 5351339-7 (Version None)
Quarter: 2007Q2

REPORT INFORMATION
  Report Type: 
  Country: None (occurrence: None)
  Receive Date: 20070608
  Receipt Date: 20070604
  Transmission Date: 20071010
  Serious: Yes (Other)
  Sender: FDA-Public Use
  Company Number: US-BOEHRINGER INGELHEIM PHARMACEUTICALS, INC.-2007-BP-07476BP

PATIENT
  Age: 85 Year
  Sex: Male

DRUGS (3)
  1. FLOMAX [Suspect]
     Indication: BENIGN PROSTATIC HYPERPLASIA
     Route: 048
     Dates: start: 20070425, end: 20070524
  2. HYDROCHLOROTHIAZIDE [Suspect]
  3. BENAZEPRIL HYDROCHLORIDE [Suspect]

REACTIONS (2)
  - FALL [None]
  - SYNCOPE [None]
